FAERS Safety Report 5247354-4 (Version None)
Quarter: 2007Q1

REPORT INFORMATION
  Report Type: 
  Country: None (occurrence: None)
  Receive Date: 20070208
  Receipt Date: 20070208
  Transmission Date: 20070707
  Serious: Yes (Other)
  Sender: FDA-Public Use
  Company Number: None

PATIENT
  Age: 65 Year
  Sex: Female
  Weight: 77 kg

DRUGS (5)
  1. FLUDARABINE [Suspect]
     Indication: ACUTE MYELOID LEUKAEMIA
     Dosage: 26 MG IVP QD X 5D IV
     Route: 042
     Dates: start: 20021014, end: 20021018
  2. CARBOPLATIN [Suspect]
     Indication: ACUTE MYELOID LEUKAEMIA
     Dosage: 210 MG IV OVER 24 HRS X 5 DOSES IV
     Route: 042
     Dates: start: 20021014, end: 20021019
  3. TOPOTECAN [Suspect]
     Indication: ACUTE MYELOID LEUKAEMIA
     Dosage: 1.5 MG DAILY X 3 DOSES IV
     Route: 042
     Dates: start: 20021019, end: 20021022
  4. THALIDOMIDE [Suspect]
     Indication: ACUTE MYELOID LEUKAEMIA
     Dosage: 100 MG THEN 200 MG Q HS PO
     Route: 048
     Dates: start: 20021015, end: 20021021
  5. THALIDOMIDE [Suspect]
     Indication: ACUTE MYELOID LEUKAEMIA
     Dosage: 100 MG THEN 200 MG Q HS PO
     Route: 048
     Dates: start: 20021022, end: 20021111

REACTIONS (5)
  - ACTIVITIES OF DAILY LIVING IMPAIRED [None]
  - BURNING SENSATION [None]
  - HYPERAESTHESIA [None]
  - PANCYTOPENIA [None]
  - PARAESTHESIA [None]
